FAERS Safety Report 17230137 (Version 28)
Quarter: 2020Q3

REPORT INFORMATION
  Report Type: Report from Study
  Country: JP (occurrence: JP)
  Receive Date: 20200103
  Receipt Date: 20200825
  Transmission Date: 20201102
  Serious: Yes (Death, Hospitalization)
  Sender: FDA-Public Use
  Company Number: JP-EISAI MEDICAL RESEARCH-EC-2019-067883

PATIENT
  Age: 77 Year
  Sex: Male
  Weight: 68.7 kg

DRUGS (12)
  1. REBAMIPIDE [Concomitant]
     Active Substance: REBAMIPIDE
     Dates: start: 200001
  2. PEMBROLIZUMAB. [Suspect]
     Active Substance: PEMBROLIZUMAB
     Route: 041
     Dates: start: 20200127, end: 20200127
  3. LENVATINIB [Suspect]
     Active Substance: LENVATINIB
     Indication: NON-SMALL CELL LUNG CANCER METASTATIC
     Route: 048
     Dates: start: 20191204, end: 20200210
  4. ETIZOLAM [Concomitant]
     Active Substance: ETIZOLAM
     Dates: start: 200001
  5. KALLIDINOGENASE [Concomitant]
     Active Substance: KALLIDINOGENASE
     Dates: start: 200001
  6. LYRICA [Concomitant]
     Active Substance: PREGABALIN
     Dates: start: 200001
  7. AMLODIPINE BESYLATE. [Concomitant]
     Active Substance: AMLODIPINE BESYLATE
     Dates: start: 200001
  8. LIMAPROST ALFADEX [Concomitant]
     Active Substance: LIMAPROST
     Dates: start: 200001
  9. OLMESARTAN MEDOXOMIL. [Concomitant]
     Active Substance: OLMESARTAN MEDOXOMIL
     Dates: start: 20191126
  10. ALLOPURINOL. [Concomitant]
     Active Substance: ALLOPURINOL
     Dates: start: 200001
  11. PEMBROLIZUMAB. [Suspect]
     Active Substance: PEMBROLIZUMAB
     Indication: NON-SMALL CELL LUNG CANCER METASTATIC
     Route: 041
     Dates: start: 20191204, end: 20191204
  12. CELECOX [Concomitant]
     Active Substance: CELECOXIB
     Dates: start: 200001

REACTIONS (3)
  - Renal impairment [Recovered/Resolved]
  - Pneumonitis [Fatal]
  - Hypothyroidism [Not Recovered/Not Resolved]

NARRATIVE: CASE EVENT DATE: 20191217
